FAERS Safety Report 7000136-5 (Version None)
Quarter: 2010Q3

REPORT INFORMATION
  Report Type: 
  Country: None (occurrence: None)
  Receive Date: 20100920
  Receipt Date: 20100412
  Transmission Date: 20110219
  Serious: Yes (Hospitalization)
  Sender: FDA-Public Use
  Company Number: US-ASTRAZENECA-2010SE16015

PATIENT
  Age: 57 Year
  Sex: Female
  Weight: 76.2 kg

DRUGS (6)
  1. SEROQUEL [Suspect]
     Indication: BIPOLAR DISORDER
     Route: 048
     Dates: start: 20100120, end: 20100409
  2. LISINOPRIL [Concomitant]
  3. LISINOPRIL [Concomitant]
  4. LISINOPRIL [Concomitant]
  5. CLONAZEPAM [Concomitant]
  6. LOVAZA [Concomitant]

REACTIONS (6)
  - ANXIETY [None]
  - BLOOD PRESSURE INCREASED [None]
  - CHEST PAIN [None]
  - HEADACHE [None]
  - MUSCLE SPASMS [None]
  - PALPITATIONS [None]
